FAERS Safety Report 19456080 (Version 1)
Quarter: 2021Q2

REPORT INFORMATION
  Report Type: Spontaneous
  Country: US (occurrence: US)
  Receive Date: 20210624
  Receipt Date: 20210624
  Transmission Date: 20210717
  Serious: Yes (Hospitalization)
  Sender: FDA-Public Use
  Company Number: None

PATIENT
  Sex: Female

DRUGS (2)
  1. NUCALA [Suspect]
     Active Substance: MEPOLIZUMAB
     Indication: ASTHMA
     Dosage: ?          OTHER FREQUENCY:EVERY FOUR WEEKS;?
     Route: 058
     Dates: start: 20190423
  2. IRON [Concomitant]
     Active Substance: IRON

REACTIONS (2)
  - Hip fracture [None]
  - Fall [None]
